FAERS Safety Report 20490662 (Version 1)
Quarter: 2022Q1

REPORT INFORMATION
  Report Type: Spontaneous
  Country: DE (occurrence: DE)
  Receive Date: 20220218
  Receipt Date: 20220218
  Transmission Date: 20220424
  Serious: Yes (Hospitalization, Congenital Anomaly, Other)
  Sender: FDA-Public Use
  Company Number: DE-ANIPHARMA-2022-DE-000020

PATIENT
  Sex: Female

DRUGS (5)
  1. ATACAND [Suspect]
     Active Substance: CANDESARTAN CILEXETIL
     Indication: Foetal exposure during pregnancy
     Dosage: 64 MG DAILY
     Route: 050
     Dates: start: 20210422, end: 20210630
  2. METOPROLOL [Concomitant]
     Active Substance: METOPROLOL
     Route: 050
  3. FOLIC ACID [Concomitant]
     Active Substance: FOLIC ACID
     Dosage: 1.3 - 1.3 GESTATIONAL WEEK
     Route: 050
  4. COMIRNATY [Concomitant]
     Active Substance: TOZINAMERAN
     Dosage: 22.4 - 22.4 GESTATIONAL WEEK / 28.4 - 28.4 GESTATIONAL WEEK
     Route: 050
     Dates: start: 20210623, end: 20210623
  5. METHYLDOPA [Concomitant]
     Active Substance: METHYLDOPA
     Dosage: 375 MG DAILY
     Route: 050

REACTIONS (6)
  - Kidney enlargement [Unknown]
  - Renal failure [Unknown]
  - Nephropathy [Unknown]
  - Patent ductus arteriosus [Unknown]
  - Foetal exposure during pregnancy [Unknown]
  - Proteinuria [Unknown]
